FAERS Safety Report 24273927 (Version 3)
Quarter: 2025Q1

REPORT INFORMATION
  Report Type: Spontaneous
  Country: JP (occurrence: JP)
  Receive Date: 20240902
  Receipt Date: 20250310
  Transmission Date: 20250408
  Serious: Yes (Other)
  Sender: ASTELLAS
  Company Number: JP-ASTELLAS-2024-AER-001414

PATIENT
  Age: 5 Decade
  Sex: Male

DRUGS (4)
  1. XOSPATA [Suspect]
     Active Substance: GILTERITINIB
     Indication: Acute myeloid leukaemia
     Route: 048
  2. XOSPATA [Suspect]
     Active Substance: GILTERITINIB
     Route: 048
     Dates: start: 20241201, end: 20241220
  3. XOSPATA [Suspect]
     Active Substance: GILTERITINIB
     Route: 048
     Dates: start: 20250221, end: 20250221
  4. XOSPATA [Suspect]
     Active Substance: GILTERITINIB
     Route: 048
     Dates: start: 20250222

REACTIONS (6)
  - Graft versus host disease [Recovering/Resolving]
  - Sepsis [Recovered/Resolved]
  - Renal impairment [Recovering/Resolving]
  - Acute myeloid leukaemia recurrent [Unknown]
  - Platelet count decreased [Recovered/Resolved]
  - White blood cell count decreased [Unknown]

NARRATIVE: CASE EVENT DATE: 20241201
